FAERS Safety Report 12278469 (Version 3)
Quarter: 2016Q2

REPORT INFORMATION
  Report Type: Report from Study
  Country: GB (occurrence: GB)
  Receive Date: 20160418
  Receipt Date: 20160617
  Transmission Date: 20160815
  Serious: Yes (Death, Hospitalization, Other)
  Sender: FDA-Public Use
  Company Number: GB-BRISTOL-MYERS SQUIBB COMPANY-BMS-2015-078938

PATIENT
  Age: 72 Year
  Sex: Male
  Weight: 103.3 kg

DRUGS (6)
  1. NIVOLUMAB [Suspect]
     Active Substance: NIVOLUMAB
     Dosage: 310 MG, UNK
     Route: 065
     Dates: start: 20150803, end: 20150803
  2. NIVOLUMAB [Suspect]
     Active Substance: NIVOLUMAB
     Dosage: 310 MG, UNK
     Route: 065
     Dates: start: 20150824
  3. NIVOLUMAB [Suspect]
     Active Substance: NIVOLUMAB
     Indication: METASTATIC MALIGNANT MELANOMA
     Dosage: 310 MG, UNK
     Route: 065
     Dates: start: 20150608
  4. NIVOLUMAB [Suspect]
     Active Substance: NIVOLUMAB
     Dosage: 310 MG, UNK
     Route: 065
     Dates: start: 20150622, end: 20150622
  5. NIVOLUMAB [Suspect]
     Active Substance: NIVOLUMAB
     Dosage: 310 MG, UNK
     Route: 065
     Dates: start: 20150706, end: 20150706
  6. NIVOLUMAB [Suspect]
     Active Substance: NIVOLUMAB
     Dosage: 310 MG, UNK
     Route: 065
     Dates: start: 20150722, end: 20150722

REACTIONS (4)
  - Malignant neoplasm progression [Fatal]
  - Aspartate aminotransferase increased [Recovered/Resolved]
  - Hypopituitarism [Recovered/Resolved with Sequelae]
  - Alanine aminotransferase increased [Recovered/Resolved]

NARRATIVE: CASE EVENT DATE: 20150813
